FAERS Safety Report 5702357-8 (Version None)
Quarter: 2008Q2

REPORT INFORMATION
  Report Type: 
  Country: None (occurrence: None)
  Receive Date: 20080411
  Receipt Date: 20080408
  Transmission Date: 20081010
  Serious: Yes (Other)
  Sender: FDA-Public Use
  Company Number: AU-BRISTOL-MYERS SQUIBB COMPANY-14142962

PATIENT
  Sex: Male

DRUGS (1)
  1. MUCOMYST [Suspect]
     Dosage: DOSAGE FORM = AMPOULE

REACTIONS (2)
  - ASTHMA [None]
  - HYPERSENSITIVITY [None]
